FAERS Safety Report 4347434-1 (Version None)
Quarter: 2004Q1

REPORT INFORMATION
  Report Type: 
  Country: None (occurrence: None)
  Receive Date: 20040319
  Receipt Date: 20031202
  Transmission Date: 20041129
  Serious: No
  Sender: FDA-Public Use
  Company Number: US-JNJFOC-20031200967

PATIENT
  Age: 16 Year
  Sex: Female
  Weight: 46.7205 kg

DRUGS (3)
  1. ORTHO EVRA [Suspect]
     Indication: ENDOMETRIOSIS
     Dosage: 1 DOSE (S), 1 IN 1 WEEK, INTRAVENOUS
     Route: 042
     Dates: start: 20031201
  2. EFFEXOR [Concomitant]
  3. ATEROL ( ) SULODEXIDE [Concomitant]

REACTIONS (1)
  - APPLICATION SITE REACTION [None]
